FAERS Safety Report 5248037-7 (Version None)
Quarter: 2007Q1

REPORT INFORMATION
  Report Type: 
  Country: None (occurrence: None)
  Receive Date: 20070227
  Receipt Date: 20070216
  Transmission Date: 20070707
  Serious: Yes (Other)
  Sender: FDA-Public Use
  Company Number: BR-SANOFI-SYNTHELABO-A01200701989

PATIENT
  Sex: Female
  Weight: 56 kg

DRUGS (1)
  1. ZOLPIDEM TARTRATE [Suspect]
     Indication: INSOMNIA
     Dosage: 1 DF
     Route: 048
     Dates: start: 20070214, end: 20070215

REACTIONS (6)
  - DELIRIUM [None]
  - DRUG INEFFECTIVE [None]
  - FATIGUE [None]
  - HALLUCINATION [None]
  - HEADACHE [None]
  - MALAISE [None]
